FAERS Safety Report 23035531 (Version 1)
Quarter: 2023Q4

REPORT INFORMATION
  Report Type: Spontaneous
  Country: DE (occurrence: DE)
  Receive Date: 20231006
  Receipt Date: 20231006
  Transmission Date: 20240109
  Serious: Yes (Hospitalization)
  Sender: FDA-Public Use
  Company Number: DE-VERTEX PHARMACEUTICALS-2023-013219

PATIENT
  Age: 26 Month
  Sex: Female

DRUGS (2)
  1. CREON [Suspect]
     Active Substance: PANCRELIPASE AMYLASE\PANCRELIPASE LIPASE\PANCRELIPASE PROTEASE
     Indication: Product used for unknown indication
     Route: 065
  2. ORKAMBI [Interacting]
     Active Substance: IVACAFTOR\LUMACAFTOR
     Indication: Cystic fibrosis
     Dosage: 100 MG LUMACAFTOR/125 MG IVACAFTOR [1 SACHET], OVER TWO DAYS
     Route: 050

REACTIONS (3)
  - Drug interaction [Unknown]
  - Incorrect dose administered [Unknown]
  - Hospitalisation [Unknown]
